FAERS Safety Report 24843070 (Version 1)
Quarter: 2025Q1

REPORT INFORMATION
  Report Type: Report from Study
  Country: US (occurrence: US)
  Receive Date: 20250115
  Receipt Date: 20250115
  Transmission Date: 20250409
  Serious: No
  Sender: HRA PHARMA
  Company Number: US-ORG100014127-2024000223

PATIENT
  Age: 2 Year
  Sex: Male

DRUGS (2)
  1. LYSODREN [Suspect]
     Active Substance: MITOTANE
     Indication: Adrenal gland cancer
     Dosage: 1 TABLET CRUSHED AND DISSOLVED IN 5 ML OF COCONUT OIL, GIVE 1.6 ML 4 TIMES DAILY
     Route: 048
  2. hydrocortisone tablet 5mg [Concomitant]
     Indication: Product used for unknown indication

REACTIONS (1)
  - Wrong technique in product usage process [Unknown]
